FAERS Safety Report 5518182-7 (Version None)
Quarter: 2007Q4

REPORT INFORMATION
  Report Type: 
  Country: None (occurrence: None)
  Receive Date: 20071113
  Receipt Date: 20071101
  Transmission Date: 20080405
  Serious: Yes (Other)
  Sender: FDA-Public Use
  Company Number: 2007AL004690

PATIENT
  Age: 47 Year
  Sex: Female

DRUGS (1)
  1. GABAPENTIN [Suspect]
     Indication: DEPRESSION
     Dosage: 600 MG BID PO
     Route: 048

REACTIONS (1)
  - SICK SINUS SYNDROME [None]
